FAERS Safety Report 13126467 (Version 1)
Quarter: 2017Q1

REPORT INFORMATION
  Report Type: Spontaneous
  Country: US (occurrence: US)
  Receive Date: 20170118
  Receipt Date: 20170118
  Transmission Date: 20170428
  Serious: No
  Sender: FDA-Public Use
  Company Number: US-ROCHE-1228391

PATIENT
  Sex: Female

DRUGS (13)
  1. RITUXAN [Suspect]
     Active Substance: RITUXIMAB
     Indication: VASCULITIS
  2. ADVIL [Concomitant]
     Active Substance: IBUPROFEN
     Indication: HEADACHE
     Route: 048
  3. RITUXAN [Suspect]
     Active Substance: RITUXIMAB
     Indication: GRANULOMA
     Route: 042
     Dates: start: 20130318, end: 20130408
  4. ALBUTEROL INHALATION SOLUTION [Concomitant]
     Active Substance: ALBUTEROL
     Indication: DYSPNOEA
     Dosage: 2 PUFF EVERY 4 HOURS AS NEEDED
     Route: 065
  5. CIPRODEX (UNITED STATES) [Concomitant]
     Dosage: 0.3 TO 0.1 %, 4 DROP SUSPENSION IN LEFT EAR FOR 10 DAYS
     Route: 047
  6. PREDNISONE. [Concomitant]
     Active Substance: PREDNISONE
     Dosage: 0.5-3 TABLET
     Route: 048
  7. DDAVP [Concomitant]
     Active Substance: DESMOPRESSIN ACETATE
     Indication: POLLAKIURIA
     Dosage: 0.1 MG HALF TABLET IN EVENING, IF NEEDED ANOTHER HALF IN MORNING
     Route: 048
  8. PREDNISONE. [Concomitant]
     Active Substance: PREDNISONE
     Dosage: QD
     Route: 048
  9. TRAMADOL. [Concomitant]
     Active Substance: TRAMADOL
     Dosage: 1 TABLET AS NEEDED
     Route: 048
  10. FLOXIN (UNITED STATES) [Concomitant]
     Dosage: 5 DROPS TWICE DAILY IN LEFT EAR FOR 5 DAYS
     Route: 047
  11. FLONASE (UNITED STATES) [Concomitant]
     Dosage: 2 SPRAYS NASALLY ONE TIME DAILY
     Route: 065
  12. MUCINEX [Concomitant]
     Active Substance: GUAIFENESIN
     Dosage: QD
     Route: 048
  13. BACTRIM [Concomitant]
     Active Substance: SULFAMETHOXAZOLE\TRIMETHOPRIM
     Dosage: 400 TO 800 MG, QD
     Route: 048

REACTIONS (1)
  - Pregnancy [Unknown]
